FAERS Safety Report 9097132 (Version 5)
Quarter: 2013Q4

REPORT INFORMATION
  Report Type: Spontaneous
  Country: FR (occurrence: FR)
  Receive Date: 20130213
  Receipt Date: 20131227
  Transmission Date: 20140711
  Serious: Yes (Death, Life-Threatening, Hospitalization, Disabling, Other)
  Sender: FDA-Public Use
  Company Number: FR-B.I. PHARMACEUTICALS,INC./RIDGEFIELD-2013-FF-00361FF

PATIENT
  Age: 57 Year
  Sex: Female
  Weight: 70 kg

DRUGS (6)
  1. PRADAXA [Suspect]
     Indication: ATRIAL FIBRILLATION
     Dosage: 300 MG
     Route: 048
     Dates: start: 201208, end: 20130203
  2. PRAVASTATINE [Concomitant]
  3. ACEBUTOLOL [Concomitant]
  4. FUROSEMIDE [Concomitant]
  5. RAMIPRIL [Concomitant]
  6. MOPRAL [Concomitant]

REACTIONS (13)
  - Aneurysm [Fatal]
  - Meningorrhagia [Fatal]
  - Cerebral haematoma [Fatal]
  - Cardio-respiratory arrest [Fatal]
  - Cerebral haematoma [Recovered/Resolved]
  - Intracranial pressure increased [Unknown]
  - Coma [Unknown]
  - Ruptured cerebral aneurysm [Unknown]
  - Mydriasis [Unknown]
  - Haemorrhage [Recovered/Resolved]
  - Muscle spasms [Unknown]
  - Haemodynamic instability [Unknown]
  - Blindness unilateral [Unknown]
